FAERS Safety Report 8321319-8 (Version None)
Quarter: 2012Q2

REPORT INFORMATION
  Report Type: 
  Country: None (occurrence: None)
  Receive Date: 20120430
  Receipt Date: 20120417
  Transmission Date: 20120825
  Serious: Yes (Hospitalization)
  Sender: FDA-Public Use
  Company Number: FR-JNJFOC-20120409946

PATIENT
  Sex: Male

DRUGS (16)
  1. CISPLATIN [Concomitant]
     Indication: CHEMOTHERAPY
     Route: 065
     Dates: start: 20111128
  2. DURAGESIC-100 [Suspect]
     Route: 062
     Dates: start: 20111208
  3. ZYPREXA [Concomitant]
     Route: 048
  4. NEXIUM [Concomitant]
     Route: 048
  5. DURAGESIC-100 [Suspect]
     Route: 062
  6. TERCIAN [Concomitant]
     Route: 048
  7. VALPROIC ACID [Concomitant]
     Route: 048
  8. ZOFRAN [Concomitant]
     Route: 048
     Dates: start: 20111122
  9. ZOLPIDEM TARTRATE [Concomitant]
     Route: 048
  10. DOXYCYCLINE [Concomitant]
     Route: 048
     Dates: start: 20111123
  11. CLONAZEPAM [Concomitant]
     Route: 048
  12. DURAGESIC-100 [Suspect]
     Route: 062
     Dates: end: 20111213
  13. ERBITUX [Concomitant]
     Indication: CHEMOTHERAPY
     Route: 065
     Dates: start: 20111128
  14. PARACETAMOL [Concomitant]
     Route: 065
  15. PRIMPERAN TAB [Concomitant]
     Route: 048
     Dates: start: 20111122
  16. DURAGESIC-100 [Suspect]
     Indication: PRODUCT USED FOR UNKNOWN INDICATION
     Route: 062

REACTIONS (11)
  - HYPERTHERMIA [None]
  - DISORIENTATION [None]
  - OVERDOSE [None]
  - CONFUSIONAL STATE [None]
  - VOMITING [None]
  - RENAL FAILURE [None]
  - FATIGUE [None]
  - RESPIRATORY RATE DECREASED [None]
  - COMA SCALE ABNORMAL [None]
  - ASTHENIA [None]
  - SOMNOLENCE [None]
